FAERS Safety Report 10186713 (Version 2)
Quarter: 2014Q2

REPORT INFORMATION
  Report Type: Report from Study
  Country: US (occurrence: US)
  Receive Date: 20140521
  Receipt Date: 20140613
  Transmission Date: 20141212
  Serious: No
  Sender: FDA-Public Use
  Company Number: PHEH2014US009841

PATIENT
  Age: 65 Year
  Sex: Male

DRUGS (18)
  1. TASIGNA [Suspect]
     Indication: CHRONIC MYELOID LEUKAEMIA
     Dosage: UNK UKN, UNK
     Route: 048
  2. TASIGNA [Suspect]
     Dosage: 200 MG, BID
     Route: 048
     Dates: start: 20130417
  3. GARLIC [Concomitant]
     Dosage: UNK UKN, UNK
  4. VITAMIN B COMPLEX [Concomitant]
     Dosage: UNK UKN, UNK
  5. FISH OIL [Concomitant]
     Dosage: UNK UKN, UNK
  6. LYRICA [Concomitant]
     Dosage: UNK UKN, UNK
  7. FLEXERIL [Concomitant]
     Dosage: UNK UKN, UNK
  8. VYTORIN [Concomitant]
     Dosage: UNK UKN, UNK
  9. PRADAXA [Concomitant]
     Dosage: UNK UKN, UNK
  10. DIGOXIN [Concomitant]
     Dosage: UNK UKN, UNK
  11. PROZAC [Concomitant]
     Dosage: UNK UKN, UNK
  12. NEXIUM//ESOMEPRAZOLE MAGNESIUM [Concomitant]
     Dosage: UNK UKN, UNK
  13. SOTALOL [Concomitant]
     Dosage: UNK UKN, UNK
  14. HYZAAR [Concomitant]
     Dosage: UNK UKN, UNK
  15. GLYBURIDE [Concomitant]
     Dosage: UNK UKN, UNK
  16. METFORMIN [Concomitant]
     Dosage: UNK UKN, UNK
  17. POTASSIUM [Concomitant]
     Dosage: UNK UKN, UNK
  18. LASIX [Concomitant]
     Dosage: UNK UKN, UNK

REACTIONS (4)
  - Visual impairment [Not Recovered/Not Resolved]
  - Photophobia [Unknown]
  - Muscle spasms [Not Recovered/Not Resolved]
  - Joint stiffness [Not Recovered/Not Resolved]
